FAERS Safety Report 9356750 (Version 1)
Quarter: 2013Q2

REPORT INFORMATION
  Report Type: Spontaneous
  Country: AU (occurrence: AU)
  Receive Date: 20130619
  Receipt Date: 20130619
  Transmission Date: 20140414
  Serious: Yes (Other)
  Sender: FDA-Public Use
  Company Number: PHHY2013AU062367

PATIENT
  Sex: Male

DRUGS (3)
  1. TEGRETOL [Suspect]
  2. VALPROIC ACID [Suspect]
  3. DITROPAN [Suspect]

REACTIONS (1)
  - Grand mal convulsion [Unknown]
